FAERS Safety Report 21408535 (Version 1)
Quarter: 2022Q4

REPORT INFORMATION
  Report Type: Spontaneous
  Country: DE (occurrence: DE)
  Receive Date: 20221004
  Receipt Date: 20221004
  Transmission Date: 20230112
  Serious: Yes (Hospitalization)
  Sender: FDA-Public Use
  Company Number: DE-ADRED-08503-01

PATIENT
  Age: 82 Year
  Sex: Female
  Weight: 55 kg

DRUGS (7)
  1. DULOXETINE HYDROCHLORIDE [Interacting]
     Active Substance: DULOXETINE HYDROCHLORIDE
     Indication: Product used for unknown indication
     Dosage: 30 MG, DAILY (30 MG, 1-0-0-0)
     Route: 048
  2. TORSEMIDE [Suspect]
     Active Substance: TORSEMIDE
     Indication: Product used for unknown indication
     Dosage: 10 MG, OTHER (10 MG, 0.5-0-0-0)
     Route: 048
  3. MIRTAZAPINE [Interacting]
     Active Substance: MIRTAZAPINE
     Indication: Product used for unknown indication
     Dosage: 30 MG, OTHER (1-0-0-0)
     Route: 048
  4. ESCITALOPRAM [Interacting]
     Active Substance: ESCITALOPRAM OXALATE
     Indication: Product used for unknown indication
     Dosage: 10 MG, OTHER (10 MG, 1-0-0-0)
     Route: 048
  5. CLONAZEPAM [Concomitant]
     Active Substance: CLONAZEPAM
     Indication: Product used for unknown indication
     Dosage: 0.5 MG, OTHER (0.5 MG, 0-0-0-1)
     Route: 048
  6. RAMIPRIL [Concomitant]
     Active Substance: RAMIPRIL
     Indication: Product used for unknown indication
     Dosage: 2.5 MG, OTHER (2.5 MG, 1-0-0-0)
     Route: 048
  7. PANTOPRAZOLE [Concomitant]
     Active Substance: PANTOPRAZOLE
     Indication: Product used for unknown indication
     Dosage: 20 MG, OTHER (20 MG, 2-0-2-0)
     Route: 048

REACTIONS (8)
  - C-reactive protein increased [Unknown]
  - Labelled drug-drug interaction medication error [Unknown]
  - Anaemia [Unknown]
  - Transaminases increased [Unknown]
  - Hyponatraemia [Unknown]
  - Decreased appetite [Unknown]
  - Vomiting [Unknown]
  - Nausea [Unknown]
